FAERS Safety Report 15291582 (Version 1)
Quarter: 2018Q3

REPORT INFORMATION
  Report Type: Spontaneous
  Country: US (occurrence: US)
  Receive Date: 20180806
  Receipt Date: 20180806
  Transmission Date: 20181010
  Serious: Yes (Disabling)
  Sender: FDA-Public Use
  Company Number: None

PATIENT
  Age: 61 Year
  Sex: Female
  Weight: 60.3 kg

DRUGS (1)
  1. JARDIANCE [Suspect]
     Active Substance: EMPAGLIFLOZIN
     Dates: start: 20180730, end: 20180804

REACTIONS (4)
  - Unevaluable event [None]
  - Urticaria [None]
  - Rash [None]
  - Erythema [None]

NARRATIVE: CASE EVENT DATE: 20180804
